FAERS Safety Report 5379482-7 (Version None)
Quarter: 2007Q3

REPORT INFORMATION
  Report Type: 
  Country: None (occurrence: None)
  Receive Date: 20070703
  Receipt Date: 20070621
  Transmission Date: 20080115
  Serious: Yes (Hospitalization)
  Sender: FDA-Public Use
  Company Number: TPA2007A01228

PATIENT
  Age: 71 Year
  Sex: Male
  Weight: 82.5547 kg

DRUGS (3)
  1. PIOGLITAZONE HCL [Suspect]
     Indication: CARDIOVASCULAR EVENT PROPHYLAXIS
     Dosage: 1 IN 1 D, PER ORAL
     Route: 048
     Dates: start: 20070110, end: 20070516
  2. PROTONIX [Concomitant]
  3. PLAVIX [Concomitant]

REACTIONS (2)
  - BLADDER CANCER [None]
  - NEOPLASM RECURRENCE [None]
